FAERS Safety Report 7478959-8 (Version None)
Quarter: 2011Q2

REPORT INFORMATION
  Report Type: 
  Country: None (occurrence: None)
  Receive Date: 20110511
  Receipt Date: 20110511
  Transmission Date: 20111010
  Serious: Yes (Other)
  Sender: FDA-Public Use
  Company Number: None

PATIENT
  Sex: Male
  Weight: 72.5755 kg

DRUGS (2)
  1. EQUATE MEDIATED ACNE GEL 10% WALMART [Suspect]
     Indication: ACNE
     Dosage: TOP FEW MONTHS
     Route: 061
  2. EQUATE MEDICATED ACNE GEL 10% WALMART [Suspect]
     Indication: ACNE
     Dosage: TOP FEW MONTHS
     Route: 061

REACTIONS (3)
  - ACNE CYSTIC [None]
  - PRODUCT QUALITY ISSUE [None]
  - CONDITION AGGRAVATED [None]
